FAERS Safety Report 4674298-9 (Version None)
Quarter: 2005Q2

REPORT INFORMATION
  Report Type: 
  Country: None (occurrence: None)
  Receive Date: 20050526
  Receipt Date: 20050523
  Transmission Date: 20051028
  Serious: Yes (Disabling)
  Sender: FDA-Public Use
  Company Number: IN-BOEHRINGER INGELHEIM PHARMACEUTICALS, INC.-2005-UK-00894UK

PATIENT
  Sex: Male
  Weight: 69 kg

DRUGS (5)
  1. AGGRENOX [Suspect]
     Indication: CEREBROVASCULAR ACCIDENT PROPHYLAXIS
     Dosage: ONE TWICE DAILY
     Route: 048
     Dates: start: 20050422, end: 20050509
  2. AGGRENOX [Suspect]
     Route: 048
     Dates: start: 20050516, end: 20050517
  3. MICARDIS (PROFESS STUDY 00015/0205/A) [Suspect]
     Indication: CEREBROVASCULAR ACCIDENT PROPHYLAXIS
     Dosage: 1 ONCE DAILY
     Route: 048
     Dates: start: 20050423
  4. PLACEBO [Suspect]
     Indication: CEREBROVASCULAR ACCIDENT PROPHYLAXIS
     Route: 048
     Dates: start: 20050423, end: 20050521
  5. ATORVASTATIN CALCIUM [Concomitant]
     Dosage: 10 MG ONCE DAILY
     Route: 048
     Dates: start: 20050421

REACTIONS (1)
  - PAIN IN EXTREMITY [None]
